FAERS Safety Report 7822220-6 (Version None)
Quarter: 2011Q4

REPORT INFORMATION
  Report Type: 
  Country: None (occurrence: None)
  Receive Date: 20111018
  Receipt Date: 20111007
  Transmission Date: 20120403
  Serious: Yes (Hospitalization)
  Sender: FDA-Public Use
  Company Number: US-ELI_LILLY_AND_COMPANY-US201109003324

PATIENT
  Sex: Female

DRUGS (8)
  1. TRICOR [Concomitant]
  2. LISINOPRIL [Concomitant]
  3. HUMULIN R [Suspect]
     Indication: TYPE 1 DIABETES MELLITUS
     Dosage: UNK, PRN
  4. HUMALOG [Suspect]
     Indication: TYPE 1 DIABETES MELLITUS
     Dosage: UNK, PRN
  5. HUMULIN 70/30 [Suspect]
     Indication: TYPE 1 DIABETES MELLITUS
     Dosage: UNK
  6. HUMULIN R [Suspect]
     Dosage: UNK, PRN
  7. ZOCOR [Concomitant]
  8. COUMADIN [Concomitant]

REACTIONS (9)
  - BLOOD GLUCOSE INCREASED [None]
  - CONFUSIONAL STATE [None]
  - INCORRECT DOSE ADMINISTERED [None]
  - DRUG EFFECT DELAYED [None]
  - SURGERY [None]
  - ABDOMINAL PAIN [None]
  - MUSCULOSKELETAL DISORDER [None]
  - CARDIAC OPERATION [None]
  - BILE DUCT STONE [None]
